FAERS Safety Report 25228472 (Version 1)
Quarter: 2025Q2

REPORT INFORMATION
  Report Type: Report from Study
  Country: CA (occurrence: CA)
  Receive Date: 20250423
  Receipt Date: 20250423
  Transmission Date: 20250716
  Serious: Yes (Other)
  Sender: JOHNSON AND JOHNSON
  Company Number: CA-JNJFOC-20250425740

PATIENT
  Sex: Male

DRUGS (1)
  1. SIMPONI [Suspect]
     Active Substance: GOLIMUMAB
     Indication: Ankylosing spondylitis
     Route: 058

REACTIONS (7)
  - Cardiac valve disease [Recovering/Resolving]
  - Fatigue [Recovering/Resolving]
  - Wheezing [Unknown]
  - Hypertension [Unknown]
  - Bronchitis [Unknown]
  - Hypokinesia [Recovering/Resolving]
  - Off label use [Unknown]
